FAERS Safety Report 4718082-6 (Version None)
Quarter: 2005Q3

REPORT INFORMATION
  Report Type: 
  Country: None (occurrence: None)
  Receive Date: 20050720
  Receipt Date: 20050616
  Transmission Date: 20060218
  Serious: Yes (Hospitalization)
  Sender: FDA-Public Use
  Company Number: IE-BRISTOL-MYERS SQUIBB COMPANY-13008214

PATIENT
  Age: 55 Year
  Sex: Female

DRUGS (8)
  1. LIPOSTAT 10% [Suspect]
     Indication: BLOOD CHOLESTEROL INCREASED
     Route: 048
  2. INDERAL [Suspect]
     Route: 048
  3. MIDON [Concomitant]
  4. EFFEXOR [Concomitant]
  5. CALCICHEW [Concomitant]
  6. ASCORBIC ACID [Concomitant]
  7. OMEPRAZOLE [Concomitant]
  8. TRAMADOL HCL [Concomitant]

REACTIONS (9)
  - AMNESIA [None]
  - ARTHRALGIA [None]
  - ASTHENIA [None]
  - BLINDNESS TRANSIENT [None]
  - HEADACHE [None]
  - MYALGIA [None]
  - PAIN [None]
  - THROAT TIGHTNESS [None]
  - VISION BLURRED [None]
